FAERS Safety Report 5598799-4 (Version None)
Quarter: 2008Q1

REPORT INFORMATION
  Report Type: 
  Country: None (occurrence: None)
  Receive Date: 20080117
  Receipt Date: 20080110
  Transmission Date: 20080703
  Serious: Yes (Other)
  Sender: FDA-Public Use
  Company Number: 2008SP000888

PATIENT
  Age: 38 Year
  Sex: Female

DRUGS (2)
  1. PEG-INTRON [Suspect]
     Indication: HEPATITIS C
     Dosage: ;SC
     Route: 058
     Dates: start: 20071110
  2. RIBAVIRIN [Suspect]
     Indication: HEPATITIS C
     Dosage: ;PO
     Route: 048
     Dates: start: 20071110

REACTIONS (5)
  - CHEST PAIN [None]
  - ERYTHEMA [None]
  - PITTING OEDEMA [None]
  - PURULENCE [None]
  - ULCER [None]
